FAERS Safety Report 6787495-3 (Version None)
Quarter: 2010Q2

REPORT INFORMATION
  Report Type: 
  Country: None (occurrence: None)
  Receive Date: 20100623
  Receipt Date: 20081226
  Transmission Date: 20101027
  Serious: Yes (Other)
  Sender: FDA-Public Use
  Company Number: US-PFIZER INC-2006115644

PATIENT
  Sex: Female
  Weight: 58 kg

DRUGS (3)
  1. DEPO-PROVERA [Suspect]
     Indication: CONTRACEPTION
     Dosage: FIRST INJECTION
     Route: 030
     Dates: start: 20041109, end: 20041109
  2. DEPO-PROVERA [Suspect]
     Dosage: INJECTION ADMINISTERED
     Route: 030
     Dates: start: 20060421, end: 20060421
  3. DEPO-PROVERA [Suspect]
     Dosage: LAST INJECTION
     Route: 030
     Dates: start: 20060712, end: 20060712

REACTIONS (2)
  - DRUG INEFFECTIVE [None]
  - UNINTENDED PREGNANCY [None]
